FAERS Safety Report 5293538-9 (Version None)
Quarter: 2007Q2

REPORT INFORMATION
  Report Type: 
  Country: None (occurrence: None)
  Receive Date: 20070411
  Receipt Date: 20070410
  Transmission Date: 20071010
  Serious: Yes (Hospitalization)
  Sender: FDA-Public Use
  Company Number: JP-JPN-A200701724

PATIENT
  Age: 66 Year
  Sex: Female

DRUGS (6)
  1. VALTREX [Suspect]
     Indication: HERPES ZOSTER
     Dosage: 500MG TWICE PER DAY
     Route: 048
     Dates: start: 20070302, end: 20070305
  2. ALLOPURINOL [Concomitant]
     Dosage: 100MG PER DAY
     Route: 065
  3. ALOSENN [Concomitant]
     Dosage: .5G PER DAY
     Route: 065
  4. CALTAN [Concomitant]
     Dosage: 1000MG THREE TIMES PER DAY
     Route: 048
  5. MYSLEE [Concomitant]
     Dosage: 10MG PER DAY
  6. CALSLOT [Concomitant]
     Dosage: 20MG PER DAY

REACTIONS (3)
  - DYSARTHRIA [None]
  - GAIT DISTURBANCE [None]
  - GRIP STRENGTH DECREASED [None]
